FAERS Safety Report 22279513 (Version 1)
Quarter: 2023Q2

REPORT INFORMATION
  Report Type: Spontaneous
  Country: US (occurrence: None)
  Receive Date: 20230502
  Receipt Date: 20230502
  Transmission Date: 20230721
  Serious: Yes (Death, Life-Threatening)
  Sender: FDA-Public Use
  Company Number: None

PATIENT
  Age: 50 Year
  Sex: Female
  Weight: 89.1 kg

DRUGS (1)
  1. HARVONI [Suspect]
     Active Substance: LEDIPASVIR\SOFOSBUVIR
     Indication: Hepatitis C
     Dosage: FREQUENCY : DAILY;?
     Route: 048

REACTIONS (8)
  - Hepatic cirrhosis [None]
  - Asthenia [None]
  - Diarrhoea [None]
  - Nausea [None]
  - Vomiting [None]
  - Loss of consciousness [None]
  - Fall [None]
  - Alcohol use [None]

NARRATIVE: CASE EVENT DATE: 20170210
